FAERS Safety Report 6138355-2 (Version None)
Quarter: 2009Q1

REPORT INFORMATION
  Report Type: 
  Country: None (occurrence: None)
  Receive Date: 20090331
  Receipt Date: 20090323
  Transmission Date: 20090719
  Serious: Yes (Hospitalization)
  Sender: FDA-Public Use
  Company Number: JP-AVENTIS-200910479JP

PATIENT
  Age: 80 Year
  Sex: Male
  Weight: 51 kg

DRUGS (8)
  1. AMARYL [Suspect]
     Indication: DIABETES MELLITUS
     Route: 048
     Dates: start: 20081130, end: 20090218
  2. PLAVIX [Suspect]
     Indication: ARTERIOSCLEROSIS
     Route: 048
     Dates: start: 20081127, end: 20081226
  3. OPALMON [Suspect]
     Indication: SPINAL COLUMN STENOSIS
     Route: 048
     Dates: start: 20070101, end: 20090218
  4. LIPITOR [Suspect]
     Indication: LIPIDS ABNORMAL
     Route: 048
     Dates: start: 20081119, end: 20090218
  5. SEIBULE [Suspect]
     Indication: DIABETES MELLITUS
     Route: 048
     Dates: start: 20081127, end: 20090218
  6. ASPIRIN [Suspect]
     Indication: ARTERIOSCLEROSIS
     Route: 048
     Dates: end: 20090218
  7. MAGNESIUM OXIDE [Concomitant]
  8. LANTUS [Concomitant]
     Indication: DIABETES MELLITUS
     Dosage: DOSE: 10 UNITS
     Route: 058
     Dates: start: 20081119

REACTIONS (1)
  - THROMBOCYTOPENIA [None]
